FAERS Safety Report 6713826-6 (Version None)
Quarter: 2010Q2

REPORT INFORMATION
  Report Type: 
  Country: None (occurrence: None)
  Receive Date: 20100506
  Receipt Date: 20100426
  Transmission Date: 20101027
  Serious: Yes (Death)
  Sender: FDA-Public Use
  Company Number: IT-PFIZER INC-2010015854

PATIENT
  Age: 71 Year
  Sex: Male

DRUGS (3)
  1. ZAVEDOS [Suspect]
     Indication: ACUTE MYELOID LEUKAEMIA
     Dosage: 22 MG X DAY
     Route: 042
     Dates: start: 20091107, end: 20091108
  2. CYCLOPHOSPHAMIDE [Suspect]
     Indication: ACUTE MYELOID LEUKAEMIA
     Dosage: 546 MG X DAY
     Route: 042
     Dates: start: 20091104, end: 20091106
  3. VINCRISTINE SULFATE [Suspect]
     Indication: ACUTE MYELOID LEUKAEMIA
     Dosage: 2 MG TOTAL
     Route: 042
     Dates: start: 20091107, end: 20091107

REACTIONS (3)
  - PNEUMONITIS [None]
  - RESPIRATORY FAILURE [None]
  - SEPTIC SHOCK [None]
